FAERS Safety Report 8814658 (Version 1)
Quarter: 2012Q4

REPORT INFORMATION
  Report Type: Spontaneous
  Country: AU (occurrence: None)
  Receive Date: 20120926
  Receipt Date: 20120926
  Transmission Date: 20130627
  Serious: Yes (Other)
  Sender: FDA-Public Use
  Company Number: 2012AP002977

PATIENT
  Sex: Male

DRUGS (1)
  1. OLANZAPINE [Suspect]
     Indication: DRUG USE FOR UNKNOWN INDICATION
     Route: 048

REACTIONS (8)
  - Swollen tongue [None]
  - Lip swelling [None]
  - Oedema mouth [None]
  - Swelling face [None]
  - Confusional state [None]
  - Urine output decreased [None]
  - Oedema peripheral [None]
  - Oedema peripheral [None]
